FAERS Safety Report 9310471 (Version 2)
Quarter: 2013Q2

REPORT INFORMATION
  Report Type: Spontaneous
  Country: US (occurrence: US)
  Receive Date: 20130527
  Receipt Date: 20130528
  Transmission Date: 20140414
  Serious: No
  Sender: FDA-Public Use
  Company Number: US-PFIZER INC-2013159790

PATIENT
  Age: 61 Year
  Sex: Female
  Weight: 78.91 kg

DRUGS (4)
  1. LYRICA [Suspect]
     Indication: CHRONIC FATIGUE SYNDROME
     Dosage: 50 MG, 2X/DAY
     Dates: start: 20130522
  2. LYRICA [Suspect]
     Indication: FIBROMYALGIA
  3. LISINOPRIL [Concomitant]
     Indication: BLOOD PRESSURE ABNORMAL
     Dosage: 5 MG DAILY AT NIGHT
  4. DEXILANT [Concomitant]
     Indication: GASTROOESOPHAGEAL REFLUX DISEASE
     Dosage: 60 MG, DAILY

REACTIONS (2)
  - Headache [Recovered/Resolved]
  - Off label use [Not Recovered/Not Resolved]
